FAERS Safety Report 5050998-6 (Version None)
Quarter: 2006Q3

REPORT INFORMATION
  Report Type: 
  Country: None (occurrence: None)
  Receive Date: 20060714
  Receipt Date: 20060706
  Transmission Date: 20061208
  Serious: Yes (Death, Life-Threatening, Hospitalization, Other)
  Sender: FDA-Public Use
  Company Number: GB-JNJFOC-20060305522

PATIENT
  Sex: Female
  Weight: 35 kg

DRUGS (9)
  1. REMICADE [Suspect]
     Indication: ANKYLOSING SPONDYLITIS
     Route: 042
  2. B12 [Concomitant]
     Route: 065
  3. AMITRIPTYLINE HCL [Concomitant]
     Route: 065
  4. ATENOLOL [Concomitant]
     Route: 065
  5. BUPRENORPHINE HCL [Concomitant]
     Route: 065
  6. CALCICHEW D3 FORTE [Concomitant]
     Route: 065
  7. PARACETAMOL [Concomitant]
     Route: 065
  8. THYROXINE [Concomitant]
     Route: 065
  9. LOPERAMIDE [Concomitant]
     Route: 065

REACTIONS (2)
  - BRONCHOPNEUMONIA [None]
  - DEATH [None]
